FAERS Safety Report 7396787 (Version 4)
Quarter: 2014Q3

REPORT INFORMATION
  Report Type: Report from Study
  Country: US (occurrence: US)
  Receive Date: 20100524
  Receipt Date: 20140911
  Transmission Date: 20150326
  Serious: Yes (Hospitalization)
  Sender: FDA-Public Use
  Company Number: US-BIOGENIDEC-2010BI016602

PATIENT
  Age: 48 Year
  Sex: Male

DRUGS (1)
  1. AVONEX [Suspect]
     Active Substance: INTERFERON BETA-1A
     Indication: MULTIPLE SCLEROSIS
     Route: 030
     Dates: start: 20021129, end: 20140723

REACTIONS (4)
  - Blood pressure increased [Unknown]
  - Overweight [Unknown]
  - Feeling abnormal [Unknown]
  - Embolic stroke [Recovered/Resolved]

NARRATIVE: CASE EVENT DATE: 2010
